FAERS Safety Report 20575775 (Version 2)
Quarter: 2022Q2

REPORT INFORMATION
  Report Type: Spontaneous
  Country: GB (occurrence: GB)
  Receive Date: 20220310
  Receipt Date: 20220405
  Transmission Date: 20220721
  Serious: Yes (Other)
  Sender: FDA-Public Use
  Company Number: None

PATIENT
  Age: 62 Year
  Sex: Male
  Weight: 76 kg

DRUGS (4)
  1. SOLIFENACIN [Suspect]
     Active Substance: SOLIFENACIN
     Indication: Nocturia
     Dosage: 5 MG TO 10MG
     Route: 065
     Dates: start: 20220201
  2. AMLODIPINE [Concomitant]
     Active Substance: AMLODIPINE BESYLATE
     Indication: Hypertension
     Dosage: UNK
     Route: 065
  3. FEXOFENADINE [Concomitant]
     Active Substance: FEXOFENADINE HYDROCHLORIDE
     Indication: Hypersensitivity
     Dosage: UNK
     Route: 065
  4. LOSARTAN [Concomitant]
     Active Substance: LOSARTAN
     Indication: Hypertension
     Dosage: UNK
     Route: 065

REACTIONS (1)
  - Extrasystoles [Recovered/Resolved]

NARRATIVE: CASE EVENT DATE: 20220201
